FAERS Safety Report 7384580-2 (Version None)
Quarter: 2011Q1

REPORT INFORMATION
  Report Type: 
  Country: None (occurrence: None)
  Receive Date: 20110330
  Receipt Date: 20110315
  Transmission Date: 20110831
  Serious: Yes (Hospitalization)
  Sender: FDA-Public Use
  Company Number: NL-GENENTECH-313209

PATIENT
  Sex: Male
  Weight: 72 kg

DRUGS (4)
  1. XOLAIR [Suspect]
     Dosage: UNK, Q12W
  2. FOSTER [Concomitant]
     Indication: PRODUCT USED FOR UNKNOWN INDICATION
     Dosage: UNK
     Dates: start: 20100701
  3. XOLAIR [Suspect]
     Indication: ASTHMA
     Dosage: 375 MG, Q2W
     Dates: start: 20091201
  4. XOLAIR [Suspect]
     Dosage: 600 MG, Q2W

REACTIONS (5)
  - MOUTH HAEMORRHAGE [None]
  - ECZEMA [None]
  - VOMITING [None]
  - NAUSEA [None]
  - ANGIOEDEMA [None]
